FAERS Safety Report 14647652 (Version 1)
Quarter: 2018Q1

REPORT INFORMATION
  Report Type: Spontaneous
  Country: US (occurrence: US)
  Receive Date: 20180316
  Receipt Date: 20180316
  Transmission Date: 20180509
  Serious: Yes (Other)
  Sender: FDA-Public Use
  Company Number: US-GLAXOSMITHKLINE-US2018GSK044377

PATIENT
  Sex: Male

DRUGS (1)
  1. LAMICTAL [Suspect]
     Active Substance: LAMOTRIGINE
     Route: 063

REACTIONS (5)
  - Autism spectrum disorder [Unknown]
  - Epilepsy [Unknown]
  - Abnormal behaviour [Unknown]
  - Exposure via breast milk [Unknown]
  - Attention deficit/hyperactivity disorder [Unknown]
